FAERS Safety Report 18955588 (Version 1)
Quarter: 2021Q1

REPORT INFORMATION
  Report Type: Spontaneous
  Country: CN (occurrence: CN)
  Receive Date: 20210301
  Receipt Date: 20210301
  Transmission Date: 20210420
  Serious: Yes (Hospitalization, Other)
  Sender: FDA-Public Use
  Company Number: CN-PFIZER INC-2021187284

PATIENT
  Sex: Male

DRUGS (4)
  1. IDARUBICIN HYDROCHLORIDE. [Suspect]
     Active Substance: IDARUBICIN HYDROCHLORIDE
     Indication: CHEMOTHERAPY
     Dosage: 10 MG, 1X/DAY
     Route: 042
     Dates: start: 20210206, end: 20210206
  2. CYTARABINE. [Suspect]
     Active Substance: CYTARABINE
     Indication: CHEMOTHERAPY
     Dosage: 0.18 G, 1X/DAY
     Route: 042
     Dates: start: 20210206, end: 20210206
  3. GLUCOSE [Concomitant]
     Active Substance: DEXTROSE
     Indication: VEHICLE SOLUTION USE
     Dosage: 500 ML, 1X/DAY
     Route: 042
     Dates: start: 20210206, end: 20210206
  4. SODIUM CHLORIDE 0.9% [Concomitant]
     Active Substance: SODIUM CHLORIDE
     Indication: VEHICLE SOLUTION USE
     Dosage: 20 ML, 1X/DAY
     Route: 042
     Dates: start: 20210206, end: 20210206

REACTIONS (4)
  - White blood cell count abnormal [Recovering/Resolving]
  - Pyrexia [Recovered/Resolved]
  - Platelet count decreased [Recovering/Resolving]
  - Myelosuppression [Recovering/Resolving]

NARRATIVE: CASE EVENT DATE: 20210207
